FAERS Safety Report 5016855-6 (Version None)
Quarter: 2006Q2

REPORT INFORMATION
  Report Type: 
  Country: None (occurrence: None)
  Receive Date: 20060526
  Receipt Date: 20060516
  Transmission Date: 20061013
  Serious: Yes (Other)
  Sender: FDA-Public Use
  Company Number: DE200512000013

PATIENT
  Age: 45 Year
  Sex: Male

DRUGS (19)
  1. ZYPREXA VELOTAB (OLANZAPINE) TABLT, DISPERSIBLE [Suspect]
     Indication: BIPOLAR DISORDER
     Dosage: 10 MG, EACH EVENING, ORAL; SEE IMAGE
     Route: 048
     Dates: start: 20050616, end: 20050621
  2. ZYPREXA VELOTAB (OLANZAPINE) TABLT, DISPERSIBLE [Suspect]
     Indication: BIPOLAR DISORDER
     Dosage: 10 MG, EACH EVENING, ORAL; SEE IMAGE
     Route: 048
     Dates: start: 20050623, end: 20050707
  3. ERGENYL CHRONO (VALPROATE SODIUM, VALPROIC ACID) [Concomitant]
  4. METHOHEXAL (METROPOLOL TARTRATE) [Concomitant]
  5. ZOCOR [Concomitant]
  6. NORVASC [Concomitant]
  7. NEXIUM [Concomitant]
  8. NEBIVOLOL HCL [Concomitant]
  9. KREON (PANCREATIN) [Concomitant]
  10. BETABION (THIAMINE HYDROCHLORIDE) [Concomitant]
  11. ATACAND [Concomitant]
  12. MIRTAZAPINE [Concomitant]
  13. TEGRETOL [Concomitant]
  14. TIMONIL (CARBAMAZEPINE) [Concomitant]
  15. ZOPICLONE (ZOPICLONE) [Concomitant]
  16. DIAZEPAM [Concomitant]
  17. SEROQUEL [Concomitant]
  18. ATOSIL (ISOPROMETHAZINE HYDROCHLORIDE) [Concomitant]
  19. SPIRONOLACTONE [Concomitant]

REACTIONS (5)
  - BLOOD OSMOLARITY DECREASED [None]
  - HAEMATOCRIT DECREASED [None]
  - HAEMOGLOBIN DECREASED [None]
  - HYPERCHOLESTEROLAEMIA [None]
  - HYPONATRAEMIA [None]
